FAERS Safety Report 21798047 (Version 1)
Quarter: 2022Q4

REPORT INFORMATION
  Report Type: Spontaneous
  Country: JP (occurrence: JP)
  Receive Date: 20221230
  Receipt Date: 20221230
  Transmission Date: 20230113
  Serious: No
  Sender: FDA-Public Use
  Company Number: JP-PFIZER INC-PV202200131092

PATIENT
  Sex: Male

DRUGS (1)
  1. GENOTROPIN [Suspect]
     Active Substance: SOMATROPIN
     Dosage: 0.4 MG (ONCE)
     Route: 058

REACTIONS (3)
  - Wrong technique in product usage process [Unknown]
  - Device leakage [Unknown]
  - Underdose [Unknown]
